FAERS Safety Report 7068605-X (Version None)
Quarter: 2010Q4

REPORT INFORMATION
  Report Type: 
  Country: None (occurrence: None)
  Receive Date: 20101027
  Receipt Date: 20101027
  Transmission Date: 20110411
  Serious: No
  Sender: FDA-Public Use
  Company Number: None

PATIENT
  Age: 11 Month
  Sex: Male
  Weight: 10.4327 kg

DRUGS (1)
  1. TEETHING TABS UNKNOWN HYLANDS [Suspect]
     Dosage: 2 TABS PO
     Route: 048
     Dates: start: 20091001, end: 20101025

REACTIONS (6)
  - AGITATION [None]
  - FLUSHING [None]
  - IRRITABILITY [None]
  - PYREXIA [None]
  - RASH [None]
  - SOMNOLENCE [None]
